FAERS Safety Report 8371380 (Version 2)
Quarter: 2012Q4

REPORT INFORMATION
  Report Type: 
  Country: US (occurrence: US)
  Receive Date: 20120131
  Receipt Date: 20120905
  Transmission Date: 20130627
  Serious: Yes (Hospitalization, Other)
  Sender: FDA-Public Use
  Company Number: US-BAYER-2012-007480

PATIENT
  Age: 26 Year
  Sex: Female
  Weight: 65.76 kg

DRUGS (2)
  1. YAZ [Suspect]
  2. OCELLA [Suspect]
     Dosage: UNK
     Dates: start: 200901, end: 200911

REACTIONS (6)
  - Cholecystitis [None]
  - Cholecystitis chronic [None]
  - Post procedural bile leak [Recovered/Resolved]
  - Injury [None]
  - Pain [Recovered/Resolved]
  - Vomiting [Recovered/Resolved]
